FAERS Safety Report 7754616-5 (Version None)
Quarter: 2011Q3

REPORT INFORMATION
  Report Type: 
  Country: None (occurrence: None)
  Receive Date: 20110915
  Receipt Date: 20110907
  Transmission Date: 20111222
  Serious: Yes (Other)
  Sender: FDA-Public Use
  Company Number: US-MERCK-1107USA02604

PATIENT
  Age: 76 Year
  Sex: Female
  Weight: 69 kg

DRUGS (2)
  1. COZAAR [Suspect]
     Indication: HYPERTENSION
     Route: 048
     Dates: end: 20100801
  2. COZAAR [Suspect]
     Route: 048

REACTIONS (5)
  - FATIGUE [None]
  - TREMOR [None]
  - ASTHENIA [None]
  - HERPES ZOSTER [None]
  - BLOOD PRESSURE INCREASED [None]
